FAERS Safety Report 5232107-3 (Version None)
Quarter: 2007Q1

REPORT INFORMATION
  Report Type: 
  Country: None (occurrence: None)
  Receive Date: 20070205
  Receipt Date: 20070129
  Transmission Date: 20070707
  Serious: Yes (Death, Hospitalization)
  Sender: FDA-Public Use
  Company Number: 163-C5013-06070603

PATIENT
  Age: 62 Year
  Sex: Male
  Weight: 101.1975 kg

DRUGS (15)
  1. CC-5013 (LENALIDOMIDE) (CAPSULES) [Suspect]
     Indication: MULTIPLE MYELOMA
     Dosage: 15 MG, FOR 21 DAYS, ORAL
     Route: 048
     Dates: start: 20040308, end: 20060712
  2. DEXAMETHASONE TAB [Suspect]
     Indication: MULTIPLE MYELOMA
  3. LEXAPRO (ESCITALOPRAM OXALATE) (TABLETS) [Concomitant]
  4. CELEBREX [Concomitant]
  5. NEURONTIN [Concomitant]
  6. MULTIVITAMIN [Concomitant]
  7. ZOMETA [Concomitant]
  8. SENNA (SENNA) [Concomitant]
  9. FLORINEF [Concomitant]
  10. PATANOL [Concomitant]
  11. HYDROCORTISONE SODIUM SUCCINATE (HYDROCORTISONE SODIUM SUCCINATE) (INJ [Concomitant]
  12. IMODIUM [Concomitant]
  13. MAGNESIUM (MAGNESIUM) [Concomitant]
  14. SIMETHICONE (DIMETICONE, ACTIVATED) [Concomitant]
  15. VALTREX [Concomitant]

REACTIONS (17)
  - ACUTE MYOCARDIAL INFARCTION [None]
  - ASTHENIA [None]
  - ATELECTASIS [None]
  - BLOOD UREA INCREASED [None]
  - BONE PAIN [None]
  - CARDIAC FAILURE CONGESTIVE [None]
  - HAEMATOCRIT DECREASED [None]
  - HAEMOGLOBIN DECREASED [None]
  - PERICARDIAL EFFUSION [None]
  - PERICARDITIS [None]
  - PLATELET COUNT DECREASED [None]
  - PLEURAL EFFUSION [None]
  - PNEUMONIA [None]
  - PULMONARY OEDEMA [None]
  - RED BLOOD CELL COUNT DECREASED [None]
  - RESPIRATORY FAILURE [None]
  - TRACHEOMALACIA [None]
